FAERS Safety Report 4932922-7 (Version None)
Quarter: 2006Q1

REPORT INFORMATION
  Report Type: 
  Country: None (occurrence: None)
  Receive Date: 20060302
  Receipt Date: 20060302
  Transmission Date: 20060701
  Serious: Yes (Other)
  Sender: FDA-Public Use
  Company Number: None

PATIENT
  Sex: Female
  Weight: 65 kg

DRUGS (3)
  1. FLUOROURACIL [Suspect]
     Indication: BREAST CANCER
     Dosage: 3950 MG
     Dates: start: 20060124
  2. CYCLOPHOSPHAMIDE [Suspect]
     Dosage: 3960 MG
     Dates: start: 20060124
  3. EPIRUBICIN [Suspect]
     Dosage: 793 MG
     Dates: start: 20060124

REACTIONS (7)
  - DEEP VEIN THROMBOSIS [None]
  - DYSPNOEA [None]
  - EJECTION FRACTION DECREASED [None]
  - FATIGUE [None]
  - NEUTROPHIL COUNT DECREASED [None]
  - PLATELET COUNT DECREASED [None]
  - WHITE BLOOD CELL COUNT DECREASED [None]
